FAERS Safety Report 8807341 (Version 2)
Quarter: 2012Q4

REPORT INFORMATION
  Report Type: 
  Country: DE (occurrence: DE)
  Receive Date: 20120925
  Receipt Date: 20121018
  Transmission Date: 20130627
  Serious: Yes (Death, Hospitalization)
  Sender: FDA-Public Use
  Company Number: DE-JUTA-2012-16238

PATIENT
  Age: 89 Year
  Sex: Male

DRUGS (8)
  1. ALFUZOSIN [Suspect]
     Indication: PRODUCT USED FOR UNKNOWN INDICATION
     Dosage: 10 mg, daily
     Route: 065
  2. RISPERIDONE [Suspect]
     Indication: PRODUCT USED FOR UNKNOWN INDICATION
     Dosage: 1 mg, daily
     Route: 065
  3. RISPERIDONE [Suspect]
     Dosage: 1.5 mg, daily
     Route: 065
  4. GALANTAMINE HYDROBROMIDE ORAL SOLUTION [Suspect]
     Indication: PRODUCT USED FOR UNKNOWN INDICATION
     Dosage: 16 mg, UNK
     Route: 065
  5. HALOPERIDOL [Suspect]
     Indication: PRODUCT USED FOR UNKNOWN INDICATION
     Dosage: 5 mg, daily
     Route: 065
  6. HALOPERIDOL [Suspect]
     Dosage: 3 mg, daily
     Route: 065
  7. HALOPERIDOL [Suspect]
     Dosage: 2.5 mg, daily
     Route: 065
  8. MELPERONE [Suspect]
     Indication: PRODUCT USED FOR UNKNOWN INDICATION
     Dosage: 25-50 mg QID
     Route: 065

REACTIONS (18)
  - Sudden death [Fatal]
  - Adverse drug reaction [Fatal]
  - Fatigue [None]
  - Fall [None]
  - Arrhythmia [None]
  - Drug interaction [None]
  - Embolism [None]
  - Hypotension [None]
  - Bundle branch block right [None]
  - Conduction disorder [None]
  - Renal failure [None]
  - Normochromic normocytic anaemia [None]
  - Agitation [None]
  - Sleep phase rhythm disturbance [None]
  - Screaming [None]
  - Anxiety [None]
  - Aggression [None]
  - Confusional state [None]
